FAERS Safety Report 6315275-1 (Version None)
Quarter: 2009Q3

REPORT INFORMATION
  Report Type: 
  Country: None (occurrence: None)
  Receive Date: 20090819
  Receipt Date: 20090813
  Transmission Date: 20100115
  Serious: Yes (Hospitalization)
  Sender: FDA-Public Use
  Company Number: PHHY2009DE20605

PATIENT
  Sex: Male

DRUGS (9)
  1. SANDIMMUNE [Suspect]
     Indication: COLITIS ULCERATIVE
     Dosage: UNK
     Route: 042
     Dates: start: 20090520, end: 20090522
  2. SANDIMMUNE [Interacting]
     Indication: COLITIS ULCERATIVE
     Dosage: 200 MG/DAY
     Route: 048
     Dates: start: 20090522, end: 20090701
  3. DECORTIN [Concomitant]
     Dosage: 10 MG
     Route: 048
  4. LOPERAMIDE [Concomitant]
     Dosage: 2 MG
     Route: 048
  5. AZATHIOPRINE [Concomitant]
     Indication: COLITIS ULCERATIVE
     Dosage: 75 MG
     Route: 048
  6. CALCIUM DURA [Concomitant]
     Route: 048
  7. VITAMIN D3 [Concomitant]
     Dosage: 600 MG
     Route: 048
  8. MARCUMAR [Concomitant]
     Indication: THROMBOSIS
     Dosage: UNK
     Route: 048
     Dates: start: 20040101
  9. FERRO SANOL COMP [Concomitant]
     Indication: THROMBOSIS

REACTIONS (9)
  - AMNESIA [None]
  - BLOOD TEST ABNORMAL [None]
  - BODY TEMPERATURE DECREASED [None]
  - DRUG INTERACTION [None]
  - INFECTION [None]
  - SHOCK [None]
  - SKIN DISCOLOURATION [None]
  - SKIN LESION [None]
  - TREMOR [None]
